FAERS Safety Report 5886821-7 (Version None)
Quarter: 2008Q3

REPORT INFORMATION
  Report Type: 
  Country: None (occurrence: None)
  Receive Date: 20080917
  Receipt Date: 20080912
  Transmission Date: 20090109
  Serious: Yes (Hospitalization)
  Sender: FDA-Public Use
  Company Number: US-BRISTOL-MYERS SQUIBB COMPANY-14333413

PATIENT
  Age: 54 Year
  Sex: Female
  Weight: 76 kg

DRUGS (10)
  1. DASATINIB [Suspect]
     Indication: HEPATIC NEOPLASM MALIGNANT
     Dosage: STARTED ON 25-JUL-08 70MG PO BID
     Route: 048
     Dates: start: 20080725, end: 20080823
  2. BENEFIBER [Concomitant]
  3. COMPAZINE [Concomitant]
     Dosage: Q6-8HR
     Route: 048
  4. KYTRIL [Concomitant]
     Route: 048
  5. MIRALAX [Concomitant]
     Dosage: PRN
     Route: 048
  6. NORVASC [Concomitant]
  7. PROGRAF [Concomitant]
     Route: 048
  8. REGLAN [Concomitant]
  9. ULTRAM [Concomitant]
     Dosage: Q4-6HRS
     Route: 048
  10. ZOFRAN [Concomitant]

REACTIONS (7)
  - ANOREXIA [None]
  - DEEP VEIN THROMBOSIS [None]
  - DEHYDRATION [None]
  - DIARRHOEA [None]
  - FATIGUE [None]
  - NAUSEA [None]
  - THROMBOSIS [None]
